FAERS Safety Report 5161633-0 (Version None)
Quarter: 2006Q4

REPORT INFORMATION
  Report Type: 
  Country: None (occurrence: None)
  Receive Date: 20061130
  Receipt Date: 20051006
  Transmission Date: 20070319
  Serious: No
  Sender: FDA-Public Use
  Company Number: US-BRISTOL-MYERS SQUIBB COMPANY-13135553

PATIENT
  Age: 58 Year
  Sex: Female

DRUGS (6)
  1. GLUCOPHAGE XR [Suspect]
     Route: 048
  2. ACTOS [Concomitant]
  3. PAROXETINE HCL [Concomitant]
  4. LANTUS [Concomitant]
  5. VYTORIN [Concomitant]
  6. GABAPENTIN [Concomitant]

REACTIONS (1)
  - BLOOD GLUCOSE FLUCTUATION [None]
